FAERS Safety Report 7986216-6 (Version None)
Quarter: 2011Q4

REPORT INFORMATION
  Report Type: 
  Country: None (occurrence: None)
  Receive Date: 20111216
  Receipt Date: 20111214
  Transmission Date: 20120403
  Serious: Yes (Life-Threatening)
  Sender: FDA-Public Use
  Company Number: DE-GLAXOSMITHKLINE-B0610385A

PATIENT
  Sex: Female
  Weight: 81 kg

DRUGS (3)
  1. LAPATINIB [Suspect]
     Indication: BREAST CANCER
     Dosage: 1250MG PER DAY
     Route: 048
     Dates: start: 20080204
  2. DOXORUBICIN HCL [Suspect]
     Indication: BREAST CANCER
     Dosage: 113.4MG EVERY 3 WEEKS
     Route: 042
     Dates: start: 20080204
  3. PACLITAXEL [Suspect]
     Indication: BREAST CANCER
     Dosage: 330.75MG EVERY 3 WEEKS
     Route: 042
     Dates: start: 20080204

REACTIONS (1)
  - NEUTROPHIL COUNT ABNORMAL [None]
